FAERS Safety Report 6642760-5 (Version None)
Quarter: 2010Q1

REPORT INFORMATION
  Report Type: 
  Country: None (occurrence: None)
  Receive Date: 20100319
  Receipt Date: 20100310
  Transmission Date: 20100710
  Serious: Yes (Other)
  Sender: FDA-Public Use
  Company Number: US-ELI_LILLY_AND_COMPANY-US200903003101

PATIENT
  Sex: Female
  Weight: 138.78 kg

DRUGS (20)
  1. BYETTA [Suspect]
     Dosage: UNK, UNK
     Dates: start: 20050401, end: 20070601
  2. RANITIDINE [Concomitant]
     Dosage: 150 MG, UNKNOWN
  3. ACTOS [Concomitant]
     Dosage: 30 MG, UNKNOWN
  4. LANTUS [Concomitant]
     Dosage: UNK, UNKNOWN
  5. CALCIUM [Concomitant]
     Dosage: UNK, UNKNOWN
  6. TRIAMTERENE AND HYDROCHLOROTHIAZIDE [Concomitant]
     Dosage: UNK, UNKNOWN
  7. CLINDAMYCIN [Concomitant]
     Dosage: UNK, UNKNOWN
  8. FLUOXETINE [Concomitant]
     Dosage: 20 MG, UNKNOWN
  9. IRON [Concomitant]
     Dosage: UNK, UNKNOWN
  10. ANTIFUNGALS [Concomitant]
     Dosage: UNK, UNKNOWN
  11. TYLENOL                                 /SCH/ [Concomitant]
     Dosage: UNK, UNKNOWN
  12. MAVIK [Concomitant]
     Dosage: 4 MG, UNKNOWN
  13. METFORMIN [Concomitant]
     Dosage: 1000 MG, UNKNOWN
  14. AMITRIPTYLINE HCL [Concomitant]
     Dosage: 50 MG, UNKNOWN
  15. LEVOTHYROXINE SODIUM [Concomitant]
     Dosage: 50 UG, UNKNOWN
  16. LISINOPRIL [Concomitant]
     Dosage: 40 MG, UNKNOWN
  17. PRILOSEC [Concomitant]
     Dosage: 20 MG, UNKNOWN
  18. ATENOLOL [Concomitant]
     Dosage: 100 MG, UNKNOWN
  19. HYDROCODONE BITARTRATE AND ACETAMINOPHEN [Concomitant]
     Dosage: UNK, UNKNOWN
  20. POTASSIUM CHLORIDE [Concomitant]
     Dosage: UNK, UNKNOWN

REACTIONS (11)
  - DIZZINESS [None]
  - GALLBLADDER DISORDER [None]
  - HYPOAESTHESIA [None]
  - HYPOTENSION [None]
  - HYPOVENTILATION [None]
  - INCONTINENCE [None]
  - MUSCLE TWITCHING [None]
  - MYOCARDIAL INFARCTION [None]
  - OFF LABEL USE [None]
  - PANCREATIC INJURY [None]
  - RENAL INJURY [None]
